FAERS Safety Report 20491641 (Version 1)
Quarter: 2022Q1

REPORT INFORMATION
  Report Type: Spontaneous
  Country: NZ (occurrence: NZ)
  Receive Date: 20220218
  Receipt Date: 20220218
  Transmission Date: 20220423
  Serious: Yes (Life-Threatening, Hospitalization)
  Sender: FDA-Public Use
  Company Number: NZ-LUPIN PHARMACEUTICALS INC.-2022-02034

PATIENT
  Age: 39 Year
  Sex: Female

DRUGS (5)
  1. AMLODIPINE [Suspect]
     Active Substance: AMLODIPINE BESYLATE
     Indication: Prinzmetal angina
     Dosage: 5 MG, QD
     Route: 048
  2. NOREPINEPHRINE [Suspect]
     Active Substance: NOREPINEPHRINE
     Indication: Prinzmetal angina
     Dosage: 0.06 MICROGRAM/KILOGRAM, 0.06 MCG/KG/MIN
     Route: 065
  3. MILRINONE [Suspect]
     Active Substance: MILRINONE
     Indication: Prinzmetal angina
     Dosage: 0.2 MICROGRAM/KILOGRAM, 0.2 MCG/KG/MIN
     Route: 065
  4. DOPAMINE [Suspect]
     Active Substance: DOPAMINE HYDROCHLORIDE
     Indication: Prinzmetal angina
     Dosage: 5 MICROGRAM/KILOGRAM, 5 MCG/KG/MIN
     Route: 065
  5. NIMODIPINE [Suspect]
     Active Substance: NIMODIPINE
     Indication: Prinzmetal angina
     Dosage: 1 MG, 1 MG/H
     Route: 065

REACTIONS (1)
  - Drug ineffective [Unknown]
